FAERS Safety Report 5483888-5 (Version None)
Quarter: 2007Q4

REPORT INFORMATION
  Report Type: 
  Country: None (occurrence: None)
  Receive Date: 20071009
  Receipt Date: 20070926
  Transmission Date: 20080405
  Serious: Yes (Hospitalization)
  Sender: FDA-Public Use
  Company Number: 2007-03233

PATIENT
  Age: 56 Year
  Sex: Male

DRUGS (4)
  1. VELCADE [Suspect]
     Indication: MULTIPLE MYELOMA
     Dosage: 1.30 MG/M2; INTRAVENOUS
     Route: 042
     Dates: start: 20070907, end: 20070907
  2. DEXAMETHASONE 0.5MG TAB [Concomitant]
  3. ONDANSETRON HCL [Concomitant]
  4. ALLOPURNOL (ALLOPURINOL) [Concomitant]

REACTIONS (2)
  - NECROTISING COLITIS [None]
  - PULMONARY EMBOLISM [None]
